FAERS Safety Report 4493989-6 (Version None)
Quarter: 2004Q4

REPORT INFORMATION
  Report Type: 
  Country: None (occurrence: None)
  Receive Date: 20041104
  Receipt Date: 20041104
  Transmission Date: 20050328
  Serious: Yes (Death)
  Sender: FDA-Public Use
  Company Number: None

PATIENT
  Age: 69 Year
  Sex: Female
  Weight: 70.3075 kg

DRUGS (6)
  1. RITUXAN [Suspect]
     Indication: THROMBOCYTOPENIC PURPURA
     Dosage: 670MG   WEEKLY  INTRAVENOU
     Route: 042
     Dates: start: 20040309, end: 20040408
  2. PROTONIX [Concomitant]
  3. PREDNISONE [Concomitant]
  4. TYLENOL [Concomitant]
  5. MORPHINE [Concomitant]
  6. LASIX [Concomitant]

REACTIONS (15)
  - ANAEMIA HAEMOLYTIC AUTOIMMUNE [None]
  - ASTHENIA [None]
  - BLOOD BILIRUBIN INCREASED [None]
  - BODY TEMPERATURE INCREASED [None]
  - CARDIO-RESPIRATORY ARREST [None]
  - CHEST PAIN [None]
  - COLD SWEAT [None]
  - DISSEMINATED INTRAVASCULAR COAGULATION [None]
  - DYSPNOEA [None]
  - FIBRIN D DIMER INCREASED [None]
  - HYPOTENSION [None]
  - HYPOXIA [None]
  - LIVEDO RETICULARIS [None]
  - SHOCK [None]
  - WHITE BLOOD CELL COUNT INCREASED [None]
